FAERS Safety Report 7167821-6 (Version None)
Quarter: 2010Q4

REPORT INFORMATION
  Report Type: 
  Country: None (occurrence: None)
  Receive Date: 20101216
  Receipt Date: 20101213
  Transmission Date: 20110411
  Serious: Yes (Other)
  Sender: FDA-Public Use
  Company Number: CHPA2010US19080

PATIENT
  Sex: Female

DRUGS (1)
  1. SLOW FE IRON TABLETS (NCH) [Suspect]
     Indication: MINERAL SUPPLEMENTATION
     Dosage: UNK, UNK
     Route: 048

REACTIONS (1)
  - MYOCARDIAL INFARCTION [None]
